FAERS Safety Report 10465079 (Version 1)
Quarter: 2014Q3

REPORT INFORMATION
  Report Type: Spontaneous
  Country: PL (occurrence: PL)
  Receive Date: 20140919
  Receipt Date: 20140919
  Transmission Date: 20150326
  Serious: Yes (Hospitalization)
  Sender: FDA-Public Use
  Company Number: PL-MYLANLABS-2014M1004722

PATIENT

DRUGS (2)
  1. METFORMIN [Suspect]
     Active Substance: METFORMIN HYDROCHLORIDE
     Dosage: 850MG
     Route: 048
  2. METFORMIN [Suspect]
     Active Substance: METFORMIN HYDROCHLORIDE
     Indication: DIABETES MELLITUS
     Dosage: 500MG
     Route: 048

REACTIONS (10)
  - Respiratory failure [Recovered/Resolved]
  - Circulatory collapse [Recovered/Resolved]
  - Toxicity to various agents [Recovered/Resolved]
  - Renal failure [Recovered/Resolved]
  - Hypotension [Recovered/Resolved]
  - Haemodialysis [None]
  - Hypoglycaemia [Recovered/Resolved]
  - Metabolic acidosis [Recovered/Resolved]
  - Hyperkalaemia [Recovered/Resolved]
  - General physical health deterioration [None]
